FAERS Safety Report 5029737-0 (Version None)
Quarter: 2006Q2

REPORT INFORMATION
  Report Type: 
  Country: None (occurrence: None)
  Receive Date: 20060620
  Receipt Date: 20060515
  Transmission Date: 20061013
  Serious: Yes (Hospitalization)
  Sender: FDA-Public Use
  Company Number: 2006UW09480

PATIENT
  Sex: Female

DRUGS (1)
  1. NOLVADEX [Suspect]
     Route: 048

REACTIONS (3)
  - ABDOMINAL DISTENSION [None]
  - DYSPNOEA [None]
  - WEIGHT INCREASED [None]
